FAERS Safety Report 7548828-3 (Version None)
Quarter: 2011Q2

REPORT INFORMATION
  Report Type: 
  Country: None (occurrence: None)
  Receive Date: 20110615
  Receipt Date: 20090809
  Transmission Date: 20111010
  Serious: Yes (Death, Other)
  Sender: FDA-Public Use
  Company Number: US-BAYER-200929071NA

PATIENT
  Age: 59 Year
  Sex: Male
  Weight: 82 kg

DRUGS (20)
  1. FENTANYL [Concomitant]
     Dosage: UNK
     Route: 042
     Dates: start: 20000613, end: 20000613
  2. CONTRAST MEDIA [Suspect]
     Indication: CATHETERISATION CARDIAC
     Dosage: UNK
     Dates: start: 20000612
  3. FUROSEMIDE [Concomitant]
     Dosage: 20 MG, QD
     Route: 048
  4. VENTOLIN HFA [Concomitant]
     Dosage: 2 PUFFS
  5. DOBUTREX [Concomitant]
     Dosage: UNK
     Route: 042
     Dates: start: 20000613, end: 20000613
  6. TRASYLOL [Suspect]
     Dosage: 99 CC FOLLOWED BY 100CC
     Route: 042
     Dates: start: 20000613, end: 20000613
  7. TRASYLOL [Suspect]
     Dosage: 25 CC/HR
     Route: 042
     Dates: start: 20000613, end: 20000613
  8. GLUCOTROL [Concomitant]
     Dosage: 5 MG, QD
     Route: 048
  9. LIPITOR [Concomitant]
     Dosage: 20 MG, QD
     Route: 048
  10. LOPID [Concomitant]
     Dosage: 10 MG, QD
     Route: 048
  11. GLUCOPHAGE [Concomitant]
     Dosage: 850 MG, TID
     Route: 048
  12. VERSED [Concomitant]
     Dosage: 1 MG, BID
     Route: 042
     Dates: start: 20000613, end: 20000613
  13. BREVIBLOC [Concomitant]
     Dosage: UNK
     Route: 042
     Dates: start: 20000613, end: 20000613
  14. TRASYLOL [Suspect]
     Indication: CORONARY ARTERY BYPASS
     Dosage: 1 ML
     Route: 042
     Dates: start: 20000613, end: 20000613
  15. BACTRIM DS [Concomitant]
     Dosage: UNK UNK, BID
     Route: 048
  16. ACETYLSALICYLIC ACID SRT [Concomitant]
     Route: 048
  17. LISINOPRIL [Concomitant]
     Route: 048
  18. ATROPINE [Concomitant]
     Dosage: UNK
     Route: 042
     Dates: start: 20000613, end: 20000613
  19. ANCEF [Concomitant]
     Dosage: 2 G, UNK
     Route: 042
     Dates: start: 20000613, end: 20000613
  20. ACTOS [Concomitant]
     Dosage: 30 MG, UNK
     Route: 048

REACTIONS (13)
  - RENAL INJURY [None]
  - ANXIETY [None]
  - FEAR [None]
  - DEATH [None]
  - UNEVALUABLE EVENT [None]
  - STRESS [None]
  - RENAL FAILURE [None]
  - RENAL IMPAIRMENT [None]
  - EMOTIONAL DISTRESS [None]
  - PAIN [None]
  - MULTI-ORGAN FAILURE [None]
  - ANHEDONIA [None]
  - INJURY [None]
